FAERS Safety Report 25923429 (Version 1)
Quarter: 2025Q4

REPORT INFORMATION
  Report Type: Spontaneous
  Country: IN (occurrence: IN)
  Receive Date: 20251015
  Receipt Date: 20251015
  Transmission Date: 20260118
  Serious: Yes (Other)
  Sender: ACCORD
  Company Number: IN-MLMSERVICE-20250923-PI650830-00108-1

PATIENT
  Age: 26 Year
  Sex: Female

DRUGS (10)
  1. CLOZAPINE [Interacting]
     Active Substance: CLOZAPINE
     Indication: Schizophrenia
     Dosage: STABLE DOSE
  2. RIFAMPIN [Interacting]
     Active Substance: RIFAMPIN
     Indication: Lymphadenitis
  3. FLUPENTIXOL [Concomitant]
     Active Substance: FLUPENTIXOL
     Indication: Schizophrenia
     Dosage: LONG-ACTING INJECTION, 20 MG EVERY 2 WEEKS
  4. ISONIAZID [Concomitant]
     Active Substance: ISONIAZID
     Indication: Lymphadenitis
  5. PYRAZINAMIDE [Concomitant]
     Active Substance: PYRAZINAMIDE
     Indication: Lymphadenitis
  6. ETHAMBUTOL [Concomitant]
     Active Substance: ETHAMBUTOL HYDROCHLORIDE
     Indication: Lymphadenitis
  7. ETHAMBUTOL [Concomitant]
     Active Substance: ETHAMBUTOL HYDROCHLORIDE
     Indication: Lymph node tuberculosis
  8. RIFAMPIN [Interacting]
     Active Substance: RIFAMPIN
     Indication: Lymph node tuberculosis
  9. ISONIAZID [Concomitant]
     Active Substance: ISONIAZID
     Indication: Lymph node tuberculosis
  10. PYRAZINAMIDE [Concomitant]
     Active Substance: PYRAZINAMIDE
     Indication: Lymph node tuberculosis

REACTIONS (4)
  - Drug interaction [Unknown]
  - Antipsychotic drug level decreased [Unknown]
  - Psychiatric symptom [Recovering/Resolving]
  - Condition aggravated [Recovering/Resolving]
